FAERS Safety Report 19161069 (Version 1)
Quarter: 2021Q2

REPORT INFORMATION
  Report Type: Other
  Country: CA (occurrence: CA)
  Receive Date: 20210421
  Receipt Date: 20210421
  Transmission Date: 20210717
  Serious: Yes (Life-Threatening, Hospitalization, Other)
  Sender: FDA-Public Use
  Company Number: CA-APOTEX-2021AP009284

PATIENT
  Age: 57 Year
  Sex: Male

DRUGS (6)
  1. INFLIXIMAB [Concomitant]
     Active Substance: INFLIXIMAB
     Indication: PRODUCT USED FOR UNKNOWN INDICATION
     Dosage: UNK
     Route: 065
  2. INDAPAMIDE. [Concomitant]
     Active Substance: INDAPAMIDE
     Indication: PRODUCT USED FOR UNKNOWN INDICATION
     Dosage: UNK
     Route: 065
  3. IMURAN [Suspect]
     Active Substance: AZATHIOPRINE
     Indication: PRODUCT USED FOR UNKNOWN INDICATION
     Dosage: 100 MILLIGRAM, QD
     Route: 048
  4. RANITIDINE. [Concomitant]
     Active Substance: RANITIDINE
     Indication: PRODUCT USED FOR UNKNOWN INDICATION
     Dosage: UNK
     Route: 065
  5. VENLAFAXINE XR [Concomitant]
     Active Substance: VENLAFAXINE HYDROCHLORIDE
     Indication: PRODUCT USED FOR UNKNOWN INDICATION
     Dosage: UNK
     Route: 065
  6. ALLOPURINOL. [Suspect]
     Active Substance: ALLOPURINOL
     Indication: PRODUCT USED FOR UNKNOWN INDICATION
     Dosage: 100 MILLIGRAM, QD
     Route: 048

REACTIONS (16)
  - Haemoglobin decreased [Unknown]
  - Hypokalaemia [Unknown]
  - Rectal haemorrhage [Unknown]
  - Anaemia [Unknown]
  - Transfusion [Unknown]
  - White blood cell count decreased [Unknown]
  - Abdominal pain [Unknown]
  - Chronic kidney disease [Unknown]
  - Weight decreased [Unknown]
  - Decreased appetite [Unknown]
  - Toxicity to various agents [Unknown]
  - Drug interaction [Unknown]
  - Diarrhoea [Unknown]
  - Blood creatinine increased [Unknown]
  - Myelosuppression [Unknown]
  - Colonoscopy [Unknown]
